FAERS Safety Report 4378150-8 (Version None)
Quarter: 2004Q2

REPORT INFORMATION
  Report Type: 
  Country: None (occurrence: None)
  Receive Date: 20040609
  Receipt Date: 20040526
  Transmission Date: 20050107
  Serious: Yes (Death, Hospitalization)
  Sender: FDA-Public Use
  Company Number: EWC040539387

PATIENT
  Age: 60 Year
  Sex: Male

DRUGS (8)
  1. GEMCITABINE HYDROCHLORIDE-IV (GEMCITABINE) [Suspect]
     Indication: BRONCHIAL NEOPLASM
     Dosage: 2600 MG OTHER
     Dates: start: 20040406
  2. GEMCITABINE HYDROCHLORIDE-IV (GEMCITABINE) [Suspect]
     Indication: LUNG NEOPLASM
     Dosage: 2600 MG OTHER
     Dates: start: 20040406
  3. CARBOPLATIN [Concomitant]
  4. ZOCOR [Concomitant]
  5. ASCAL(ACETYLSALICYLATE CALCIUM) [Concomitant]
  6. NAPROXEN [Concomitant]
  7. SELOKEEN (METOPROLOL TARTRATE) [Concomitant]
  8. ENALAPRIL MALEATE [Concomitant]

REACTIONS (3)
  - DIALYSIS [None]
  - REFUSAL OF TREATMENT BY PATIENT [None]
  - RHABDOMYOLYSIS [None]
